FAERS Safety Report 6479908-1 (Version None)
Quarter: 2009Q4

REPORT INFORMATION
  Report Type: 
  Country: None (occurrence: None)
  Receive Date: 20091208
  Receipt Date: 20091030
  Transmission Date: 20100525
  Serious: Yes (Other)
  Sender: FDA-Public Use
  Company Number: US-SANOFI-AVENTIS-2009SA000986

PATIENT
  Age: 82 Year
  Sex: Female

DRUGS (2)
  1. LOVENOX [Suspect]
     Indication: PROPHYLAXIS
     Dosage: PATIENT PRECRIBED 60 MG DAILY, WAS GIVEN 150 MG DAILY
     Route: 058
     Dates: start: 20090521, end: 20090522
  2. ALL OTHER THERAPEUTIC PRODUCTS [Concomitant]

REACTIONS (4)
  - GLOMERULAR FILTRATION RATE DECREASED [None]
  - HAEMORRHAGE [None]
  - OVERDOSE [None]
  - RENAL FAILURE ACUTE [None]
